FAERS Safety Report 9961310 (Version 2)
Quarter: 2014Q2

REPORT INFORMATION
  Report Type: Report from Study
  Country: US (occurrence: US)
  Receive Date: 20140305
  Receipt Date: 20140408
  Transmission Date: 20141212
  Serious: Yes (Hospitalization)
  Sender: FDA-Public Use
  Company Number: US-JNJFOC-20140216776

PATIENT
  Age: 18 Year
  Sex: Male
  Weight: 195.05 kg

DRUGS (2)
  1. REMICADE [Suspect]
     Indication: RHEUMATOID ARTHRITIS
     Route: 042
     Dates: start: 20140207
  2. REMICADE [Suspect]
     Indication: RHEUMATOID ARTHRITIS
     Dosage: IN 2012 OR 2013
     Route: 042

REACTIONS (4)
  - Sinus polyp [Not Recovered/Not Resolved]
  - Vomiting [Unknown]
  - Streptococcal infection [Unknown]
  - Sinusitis bacterial [Unknown]
